FAERS Safety Report 8006474-1 (Version None)
Quarter: 2011Q4

REPORT INFORMATION
  Report Type: 
  Country: None (occurrence: None)
  Receive Date: 20111226
  Receipt Date: 20111213
  Transmission Date: 20120403
  Serious: Yes (Hospitalization, Other)
  Sender: FDA-Public Use
  Company Number: PHHY2011JP21823

PATIENT
  Sex: Male
  Weight: 56 kg

DRUGS (3)
  1. TASIGNA [Suspect]
     Indication: CHRONIC MYELOID LEUKAEMIA
     Dosage: 800 MG, DAILY
     Route: 048
     Dates: start: 20091214
  2. BIO THREE [Concomitant]
     Indication: ARTERIOSCLEROSIS OBLITERANS
     Dosage: 3 DF, UNK
     Route: 048
     Dates: start: 20091214
  3. ANPLAG [Concomitant]
     Indication: ARTERIOSCLEROSIS OBLITERANS
     Dosage: 300 MG, UNK
     Route: 048
     Dates: start: 20091214

REACTIONS (3)
  - JAUNDICE [None]
  - CHOLECYSTITIS [None]
  - HEPATIC FUNCTION ABNORMAL [None]
